FAERS Safety Report 13135025 (Version 1)
Quarter: 2017Q1

REPORT INFORMATION
  Report Type: Spontaneous
  Country: US (occurrence: US)
  Receive Date: 20170120
  Receipt Date: 20170120
  Transmission Date: 20170428
  Serious: Yes (Other)
  Sender: FDA-Public Use
  Company Number: US-TEVA-730996USA

PATIENT
  Sex: Male

DRUGS (1)
  1. AMLODIPINE W/OLMESARTAN [Suspect]
     Active Substance: AMLODIPINE MALEATE\OLMESARTAN MEDOXOMIL
     Route: 065
     Dates: start: 20161107

REACTIONS (7)
  - Confusional state [Recovered/Resolved]
  - Product substitution issue [Unknown]
  - Incontinence [Recovered/Resolved]
  - Disorientation [Recovered/Resolved]
  - Feeling drunk [Recovered/Resolved]
  - Abasia [Recovered/Resolved]
  - Impaired driving ability [Recovered/Resolved]
